FAERS Safety Report 8029223-X (Version None)
Quarter: 2012Q1

REPORT INFORMATION
  Report Type: 
  Country: None (occurrence: None)
  Receive Date: 20120106
  Receipt Date: 20120105
  Transmission Date: 20120608
  Serious: Yes (Hospitalization, Other)
  Sender: FDA-Public Use
  Company Number: PHEH2005US10700

PATIENT
  Sex: Male
  Weight: 103.85 kg

DRUGS (15)
  1. AREDIA [Suspect]
     Dosage: 90 MG, UNK
     Dates: start: 19971204
  2. ALLOPURINOL [Concomitant]
     Indication: RENAL FAILURE
     Dosage: 300MG UNK
  3. NEURONTIN [Concomitant]
     Dosage: 1800 MG, UNK
  4. OSCAL [Concomitant]
  5. DOXORUBICIN HCL [Concomitant]
  6. DEXAMETHASONE [Concomitant]
     Dosage: 4MG 4 DAYS EACH MONTH
  7. PAROXETINE [Concomitant]
     Dosage: 20 MG, UNK
  8. LODINE [Concomitant]
  9. THALIDOMIDE [Concomitant]
     Dosage: 200 MG, UNK
  10. ALPRAZOLAM [Concomitant]
     Indication: DEPRESSION
     Dosage: 25MCG
  11. TAGAMET [Concomitant]
  12. ADRIAMYCIN PFS [Concomitant]
     Dosage: 80MG
  13. VINCRISTINE [Concomitant]
     Dosage: 2MG
  14. ZOMETA [Suspect]
  15. ASPIRIN [Concomitant]

REACTIONS (19)
  - NEPHROSCLEROSIS [None]
  - PARAESTHESIA ORAL [None]
  - OSTEOARTHRITIS [None]
  - ALPHA HAEMOLYTIC STREPTOCOCCAL INFECTION [None]
  - CARDIOMEGALY [None]
  - VENOUS THROMBOSIS [None]
  - PLEURAL EFFUSION [None]
  - BONE DISORDER [None]
  - OSTEOMYELITIS [None]
  - GINGIVAL DISORDER [None]
  - ATELECTASIS [None]
  - HYPOAESTHESIA ORAL [None]
  - SEPSIS [None]
  - CHEST PAIN [None]
  - OSTEONECROSIS OF JAW [None]
  - EXCESSIVE GRANULATION TISSUE [None]
  - DIABETES MELLITUS [None]
  - MASTICATION DISORDER [None]
  - DYSPNOEA [None]
